FAERS Safety Report 9876494 (Version 1)
Quarter: 2014Q1

REPORT INFORMATION
  Report Type: Spontaneous
  Country: US (occurrence: None)
  Receive Date: 20140205
  Receipt Date: 20140205
  Transmission Date: 20141002
  Serious: Yes (Hospitalization)
  Sender: FDA-Public Use
  Company Number: None

PATIENT
  Age: 8 Year
  Sex: Male
  Weight: 18.5 kg

DRUGS (6)
  1. DEXAMETHASONE [Suspect]
  2. DOXORUBICIN HYDROCHLORIDE [Suspect]
  3. LEUCOVORIN CALCIUM [Suspect]
  4. METHOTREXATE [Suspect]
  5. PEG-L-ASPARAGINASE (PEGASPARGASE, ONCOSPAR) [Suspect]
  6. VINCRISTINE SULFATE [Suspect]

REACTIONS (1)
  - Respiratory distress [None]
